FAERS Safety Report 23405184 (Version 2)
Quarter: 2024Q1

REPORT INFORMATION
  Report Type: Spontaneous
  Country: FR (occurrence: FR)
  Receive Date: 20240116
  Receipt Date: 20240118
  Transmission Date: 20240410
  Serious: Yes (Other)
  Sender: FDA-Public Use
  Company Number: FR-STADA-01183782

PATIENT
  Age: 53 Year
  Sex: Female

DRUGS (10)
  1. CYTARABINE [Suspect]
     Active Substance: CYTARABINE
     Dosage: UNK
  2. GEMTUZUMAB OZOGAMICIN [Suspect]
     Active Substance: GEMTUZUMAB OZOGAMICIN
     Dosage: 6 MG/M2
  3. FLUDARABINE [Suspect]
     Active Substance: FLUDARABINE PHOSPHATE
     Dosage: UNK
  4. ETOPOSIDE PHOSPHATE [Suspect]
     Active Substance: ETOPOSIDE PHOSPHATE
     Indication: Acute myeloid leukaemia
     Dosage: 100 MG/M2
  5. AMSACRINE [Suspect]
     Active Substance: AMSACRINE
     Dosage: 150 MG/M2
  6. AZACITIDINE [Suspect]
     Active Substance: AZACITIDINE
     Indication: Acute myeloid leukaemia
     Dosage: UNK
  7. THIOTEPA [Suspect]
     Active Substance: THIOTEPA
     Dosage: UNK
  8. BUSULFAN [Suspect]
     Active Substance: BUSULFAN
     Dosage: UNK
  9. DEFIBROTIDE [Concomitant]
     Active Substance: DEFIBROTIDE (BOVINE)
     Indication: Pulmonary arterial hypertension
     Dosage: 25 MG/KG/DAY
  10. AMBRISENTAN [Concomitant]
     Active Substance: AMBRISENTAN
     Indication: Pulmonary veno-occlusive disease

REACTIONS (2)
  - Pulmonary veno-occlusive disease [Unknown]
  - Neoplasm progression [Unknown]
